FAERS Safety Report 14314837 (Version 1)
Quarter: 2017Q4

REPORT INFORMATION
  Report Type: Spontaneous
  Country: BR (occurrence: BR)
  Receive Date: 20171221
  Receipt Date: 20171221
  Transmission Date: 20180321
  Serious: Yes (Other)
  Sender: FDA-Public Use
  Company Number: BR-BAYER-2017-245010

PATIENT
  Age: 52 Year
  Sex: Female

DRUGS (15)
  1. ASPIRINA 500 MG [Suspect]
     Active Substance: ASPIRIN
  2. DIAZEPAN [Concomitant]
     Active Substance: DIAZEPAM
     Indication: BIPOLAR DISORDER
     Dosage: 4 DF, QD
     Route: 048
     Dates: start: 2006
  3. CARBAMAZEPIN [Concomitant]
     Active Substance: CARBAMAZEPINE
     Indication: MUSCLE SPASMS
     Dosage: 4 DF, QD
     Route: 048
     Dates: start: 2006
  4. GLIBENCLAMID [Concomitant]
     Active Substance: GLYBURIDE
     Indication: DIABETES MELLITUS
     Dosage: 1 DF, QD
     Route: 048
     Dates: start: 2012
  5. FUROSEMID [Concomitant]
     Active Substance: FUROSEMIDE
     Indication: POLYURIA
     Dosage: 1 DF, QD
     Route: 048
  6. ASPIRINA 500 MG [Concomitant]
     Active Substance: ASPIRIN
     Indication: BACK PAIN
  7. AMYTRIL [Concomitant]
     Active Substance: AMITRIPTYLINE HYDROCHLORIDE
     Dosage: 3 DF, QD
     Route: 048
     Dates: start: 2006
  8. METFORMIN [Concomitant]
     Active Substance: METFORMIN HYDROCHLORIDE
     Indication: DIABETES MELLITUS
     Dosage: 2 DF, QD
     Route: 048
     Dates: start: 2011
  9. ASPIRINA 500 MG [Concomitant]
     Active Substance: ASPIRIN
     Indication: HAEMODILUTION
     Dosage: 1 DF, QD
     Dates: start: 2013
  10. PHENERGAN [Concomitant]
     Active Substance: PROMETHAZINE HYDROCHLORIDE
     Indication: BIPOLAR DISORDER
     Dosage: 3 DF, QD
     Route: 048
     Dates: start: 2006
  11. HALOPERIDOL. [Concomitant]
     Active Substance: HALOPERIDOL
     Indication: PSYCHOTIC DISORDER
     Dosage: 1 DF IF CALM
     Dates: start: 2008
  12. INSULIN [Concomitant]
     Active Substance: INSULIN NOS
     Indication: DIABETES MELLITUS
     Dosage: 1 DF, QD
     Dates: start: 2011
  13. ASPIRINA 500 MG [Concomitant]
     Active Substance: ASPIRIN
     Indication: INFARCTION
     Dosage: 2 DF, ONCE
     Dates: start: 20171218, end: 20171218
  14. RIVOTRIL [Concomitant]
     Active Substance: CLONAZEPAM
     Indication: DEPRESSION
     Dosage: 4 DF, QD
     Route: 048
     Dates: start: 2006
  15. HALOPERIDOL. [Concomitant]
     Active Substance: HALOPERIDOL
     Indication: PSYCHOTIC DISORDER
     Dosage: 3 DF, TID
     Route: 048
     Dates: start: 2008

REACTIONS (3)
  - Product label confusion [None]
  - Mass [None]
  - Urinary retention [None]

NARRATIVE: CASE EVENT DATE: 20171218
